FAERS Safety Report 4425514-X (Version None)
Quarter: 2004Q3

REPORT INFORMATION
  Report Type: 
  Country: None (occurrence: None)
  Receive Date: 20040809
  Receipt Date: 20040730
  Transmission Date: 20050211
  Serious: Yes (Death)
  Sender: FDA-Public Use
  Company Number: 000971

PATIENT
  Age: 63 Year
  Sex: Male
  Weight: 95.3 kg

DRUGS (7)
  1. ZEVALIN [Suspect]
     Indication: NON-HODGKIN'S LYMPHOMA
     Dosage: 250 MG/M2, SINGLE, RITUXAN DOSE 1, INTRAVENOUS
     Route: 042
     Dates: start: 20000907, end: 20000907
  2. ZEVALIN [Suspect]
     Dosage: 5 MCI, SINGLE, IN-[111] ZEVALIN, INTRAVENOUS
     Route: 042
     Dates: start: 20000907, end: 20000907
  3. ZEVALIN [Suspect]
     Dosage: 250 MG/M2, SINGLE, RITUXAN DOSE 2, INTRAVENOUS
     Route: 042
     Dates: start: 20000914, end: 20000914
  4. ZEVALIN [Suspect]
     Dosage: 5 MCI, SINGLE, IN-[111] ZEVALIN, INTRAVENOUS
     Route: 042
     Dates: start: 20000914, end: 20000914
  5. ZEVALIN [Suspect]
     Dosage: 86.2 MCI, SINGLE , Y-[90] ZEVALIN, INTRAVENOUS
     Route: 042
     Dates: start: 20000914, end: 20000914
  6. ETOPOSIDE [Suspect]
     Indication: NON-HODGKIN'S LYMPHOMA
     Dosage: INTRAVENOUS
     Route: 042
     Dates: start: 20000901
  7. CYCLOPHOSPHAMIDE [Suspect]
     Indication: NON-HODGKIN'S LYMPHOMA
     Dosage: INTRAVENOUS
     Route: 042
     Dates: start: 20000901

REACTIONS (19)
  - ADENOCARCINOMA [None]
  - ADENOCARCINOMA PANCREAS [None]
  - ASCITES [None]
  - BLOOD ALKALINE PHOSPHATASE INCREASED [None]
  - BLOOD CREATININE INCREASED [None]
  - CARBOHYDRATE ANTIGEN 125 INCREASED [None]
  - CARBOHYDRATE ANTIGEN 19-9 INCREASED [None]
  - CARCINOMA [None]
  - DYSPEPSIA [None]
  - LYMPHADENOPATHY [None]
  - MALIGNANT NEOPLASM PROGRESSION [None]
  - METASTASES TO GASTROINTESTINAL TRACT [None]
  - METASTASES TO NECK [None]
  - METASTASES TO THE MEDIASTINUM [None]
  - METASTASIS [None]
  - NON-HODGKIN'S LYMPHOMA RECURRENT [None]
  - PANCREATIC CARCINOMA METASTATIC [None]
  - PERITONEAL CARCINOMA [None]
  - SPLENOMEGALY [None]
